FAERS Safety Report 20219003 (Version 1)
Quarter: 2021Q4

REPORT INFORMATION
  Report Type: Spontaneous
  Country: US (occurrence: US)
  Receive Date: 20211222
  Receipt Date: 20211222
  Transmission Date: 20220304
  Serious: No
  Sender: FDA-Public Use
  Company Number: US-BIOHAVEN PHARMACEUTICALS-2021BHV01126

PATIENT
  Age: 62 Year
  Sex: Female
  Weight: 63.039 kg

DRUGS (14)
  1. NURTEC ODT [Suspect]
     Active Substance: RIMEGEPANT SULFATE
     Dosage: 75 MG, EVERY 48 HOURS?TREATMENT START STOP DATE:21-08-21//
     Route: 060
     Dates: start: 20210821
  2. PHENERGAN [Concomitant]
     Active Substance: PROMETHAZINE HYDROCHLORIDE
     Dosage: UNK, AS NEEDED?TREATMENT START STOP DATE:21-08-21//
  3. ALPRAZOLAM [Concomitant]
     Active Substance: ALPRAZOLAM
     Dosage: 0.5 MG, AS NEEDED?TREATMENT START STOP DATE:21-08-21//
  4. LISINOPRIL [Concomitant]
     Active Substance: LISINOPRIL
     Dosage: 5 MG, 1X/DAY?TREATMENT START STOP DATE:21-08-21//
  5. ROSUVASTATIN CALCIUM [Concomitant]
     Active Substance: ROSUVASTATIN CALCIUM
     Dosage: 20 MG, 1X/WEEK ON SUNDAY NIGHT?TREATMENT START STOP DATE:21-08-21//
  6. EZETIMIBE [Concomitant]
     Active Substance: EZETIMIBE
     Dosage: 10 MG, 1X/DAY?TREATMENT START STOP DATE:21-08-21//
  7. UNSPECIFIED INGREDIENT [Concomitant]
     Active Substance: UNSPECIFIED INGREDIENT
     Dosage: 1 PUMP, 3X/DAY?TREATMENT START STOP DATE:21-08-21//
     Route: 060
  8. VALACYCLOVIR HYDROCHLORIDE [Concomitant]
     Active Substance: VALACYCLOVIR HYDROCHLORIDE
     Dosage: 1 G, 1X/DAY?TREATMENT START STOP DATE:21-08-21//
  9. TRAVATAN Z [Concomitant]
     Active Substance: TRAVOPROST
  10. VITAMIN C GUMMY [Concomitant]
  11. VITAMIN D GUMMY [Concomitant]
  12. ELDERBERRY GUMMY [Concomitant]
  13. VITAMIN D3 GUMMY [Concomitant]
  14. PROBIOTICS GUMMY [Concomitant]

REACTIONS (8)
  - Drug ineffective [Recovering/Resolving]
  - Hypophagia [Not Recovered/Not Resolved]
  - Facial pain [Not Recovered/Not Resolved]
  - Nerve compression [Not Recovered/Not Resolved]
  - Gastrooesophageal reflux disease [Recovering/Resolving]
  - Nausea [Not Recovered/Not Resolved]
  - Abdominal pain upper [Not Recovered/Not Resolved]
  - Unevaluable event [Not Recovered/Not Resolved]

NARRATIVE: CASE EVENT DATE: 20210801
